FAERS Safety Report 5526761-6 (Version None)
Quarter: 2007Q4

REPORT INFORMATION
  Report Type: 
  Country: None (occurrence: None)
  Receive Date: 20071127
  Receipt Date: 20071120
  Transmission Date: 20080405
  Serious: Yes (Other)
  Sender: FDA-Public Use
  Company Number: BR-ROCHE-532647

PATIENT
  Age: 28 Year
  Sex: Female

DRUGS (1)
  1. ROACUTAN [Suspect]
     Indication: ACNE
     Route: 048
     Dates: start: 20070801, end: 20071101

REACTIONS (2)
  - NO ADVERSE REACTION [None]
  - PREGNANCY [None]
